FAERS Safety Report 21468734 (Version 1)
Quarter: 2022Q4

REPORT INFORMATION
  Report Type: Report from Study
  Country: CO (occurrence: CO)
  Receive Date: 20221018
  Receipt Date: 20221018
  Transmission Date: 20230113
  Serious: Yes (Death)
  Sender: FDA-Public Use
  Company Number: CO-JNJFOC-20221022903

PATIENT
  Age: 80 Year
  Sex: Female
  Weight: 55 kg

DRUGS (1)
  1. IMBRUVICA [Suspect]
     Active Substance: IBRUTINIB
     Indication: B-cell small lymphocytic lymphoma
     Route: 048
     Dates: start: 20220629

REACTIONS (1)
  - Death [Fatal]

NARRATIVE: CASE EVENT DATE: 20221010
